FAERS Safety Report 10473125 (Version 1)
Quarter: 2014Q3

REPORT INFORMATION
  Report Type: Spontaneous
  Country: US (occurrence: US)
  Receive Date: 20140924
  Receipt Date: 20140924
  Transmission Date: 20150326
  Serious: No
  Sender: FDA-Public Use
  Company Number: US-SA-2014SA092610

PATIENT
  Age: 56 Year
  Sex: Female
  Weight: 54.8 kg

DRUGS (1)
  1. AUBAGIO [Suspect]
     Active Substance: TERIFLUNOMIDE
     Indication: MULTIPLE SCLEROSIS
     Route: 065
     Dates: start: 20130502

REACTIONS (5)
  - Photosensitivity reaction [Unknown]
  - Nodule [Unknown]
  - Peripheral swelling [Unknown]
  - Skin burning sensation [Unknown]
  - Laceration [Unknown]

NARRATIVE: CASE EVENT DATE: 20140531
